FAERS Safety Report 9890658 (Version 1)
Quarter: 2014Q1

REPORT INFORMATION
  Report Type: Report from Study
  Country: US (occurrence: US)
  Receive Date: 20140212
  Receipt Date: 20140212
  Transmission Date: 20141002
  Serious: Yes (Other)
  Sender: FDA-Public Use
  Company Number: US-ROXANE LABORATORIES, INC.-2014-BI-05443GD

PATIENT
  Sex: 0

DRUGS (3)
  1. MORPHINE [Suspect]
     Indication: PAIN
  2. OXYCODONE [Suspect]
     Indication: PAIN
     Dosage: 30 MG
  3. FENTANYL [Suspect]
     Indication: PAIN
     Dosage: 6.25 MCG
     Route: 062

REACTIONS (1)
  - Abnormal behaviour [Unknown]
